FAERS Safety Report 5230487-6 (Version None)
Quarter: 2007Q1

REPORT INFORMATION
  Report Type: 
  Country: None (occurrence: None)
  Receive Date: 20070202
  Receipt Date: 20070124
  Transmission Date: 20070707
  Serious: Yes (Death)
  Sender: FDA-Public Use
  Company Number: SPV1-2007-00314

PATIENT
  Age: 15 Year
  Sex: Male

DRUGS (1)
  1. ADDERALL XR 10 [Suspect]
     Dosage: 25 MG, 1X/DAY:QD

REACTIONS (1)
  - COMPLETED SUICIDE [None]
